FAERS Safety Report 6770346-0 (Version None)
Quarter: 2010Q2

REPORT INFORMATION
  Report Type: 
  Country: None (occurrence: None)
  Receive Date: 20100615
  Receipt Date: 20100602
  Transmission Date: 20101027
  Serious: Yes (Hospitalization)
  Sender: FDA-Public Use
  Company Number: ES-ELI_LILLY_AND_COMPANY-ES201006001518

PATIENT
  Sex: Female
  Weight: 63 kg

DRUGS (12)
  1. FORTEO [Suspect]
     Indication: OSTEOPOROSIS
     Dosage: 20 UG, DAILY (1/D)
     Route: 058
     Dates: start: 20091029
  2. SINTROM [Concomitant]
     Dosage: 4 MG, UNKNOWN
     Route: 048
  3. MASTICAL [Concomitant]
     Dosage: 2 D/F, DAILY (1/D)
     Route: 048
  4. LEVOTHYROXINE SODIUM [Concomitant]
     Dosage: 50 MG, DAILY (1/D)
     Route: 048
  5. ZAMENE [Concomitant]
     Dosage: 6 MG, DAILY (1/D)
     Route: 048
  6. DIGOXIN [Concomitant]
     Dosage: 0.5 D/F, DAILY (1/D)
     Route: 048
  7. FUROSEMIDE [Concomitant]
     Dosage: 20 MG, DAILY (1/D)
     Route: 048
  8. INALADUO [Concomitant]
     Dosage: 2 D/F, 2/D
     Route: 055
  9. DOLQUINE [Concomitant]
     Dosage: 200 MG, DAILY (1/D)
     Route: 048
  10. CONDROSULF [Concomitant]
     Dosage: 2 D/F, DAILY (1/D)
     Route: 048
  11. MASDIL [Concomitant]
     Dosage: 120 MG, 3/D
     Route: 048
  12. SPIRIVA [Concomitant]
     Dosage: UNK, DAILY (1/D)

REACTIONS (4)
  - ARRHYTHMIA [None]
  - ASTHMA [None]
  - PAIN IN EXTREMITY [None]
  - RENAL FAILURE [None]
